FAERS Safety Report 15646263 (Version 1)
Quarter: 2018Q4

REPORT INFORMATION
  Report Type: Spontaneous
  Country: US (occurrence: US)
  Receive Date: 20181122
  Receipt Date: 20181122
  Transmission Date: 20190205
  Serious: No
  Sender: FDA-Public Use
  Company Number: US-TEVA-2018-US-972954

PATIENT
  Sex: Female

DRUGS (1)
  1. OXYBUTYNIN. [Suspect]
     Active Substance: OXYBUTYNIN CHLORIDE
     Indication: HYPERTONIC BLADDER
     Dosage: 1 PATCH EVERY 2 DAYS
     Route: 062
     Dates: start: 201810

REACTIONS (4)
  - Off label use [Unknown]
  - Rash generalised [Not Recovered/Not Resolved]
  - Wrong technique in product usage process [Unknown]
  - Product residue present [Unknown]
